FAERS Safety Report 9423609 (Version 1)
Quarter: 2013Q3

REPORT INFORMATION
  Report Type: Spontaneous
  Country: CL (occurrence: CL)
  Receive Date: 20130726
  Receipt Date: 20130726
  Transmission Date: 20140515
  Serious: Yes (Life-Threatening, Hospitalization, Other)
  Sender: FDA-Public Use
  Company Number: CL-ASTRAZENECA-2013SE56702

PATIENT
  Sex: Male

DRUGS (1)
  1. BRILINTA [Suspect]
     Route: 048
     Dates: start: 20130622, end: 20130716

REACTIONS (3)
  - Thrombosis in device [Recovering/Resolving]
  - Hypertension [Unknown]
  - Drug dose omission [Unknown]
